FAERS Safety Report 6080421-4 (Version None)
Quarter: 2009Q1

REPORT INFORMATION
  Report Type: 
  Country: None (occurrence: None)
  Receive Date: 20090217
  Receipt Date: 20090206
  Transmission Date: 20090719
  Serious: Yes (Other)
  Sender: FDA-Public Use
  Company Number: PHHY2009DK04309

PATIENT
  Sex: Female
  Weight: 54 kg

DRUGS (5)
  1. ACLASTA [Suspect]
     Indication: OSTEOPOROSIS
     Dosage: 5 MG YEARLY
     Dates: start: 20080226
  2. PREDNISOLONE [Suspect]
     Dosage: UNK
  3. METHOTREXATE (NGX) [Suspect]
     Dosage: UNK
  4. REMICADE [Suspect]
     Dosage: 100 MG
     Route: 042
  5. LOSEC [Suspect]
     Dosage: UNK

REACTIONS (2)
  - MOBILITY DECREASED [None]
  - MUSCULOSKELETAL PAIN [None]
